FAERS Safety Report 9930900 (Version 2)
Quarter: 2014Q1

REPORT INFORMATION
  Report Type: Report from Study
  Country: SI (occurrence: SI)
  Receive Date: 20140227
  Receipt Date: 20140227
  Transmission Date: 20141002
  Serious: Yes (Hospitalization)
  Sender: FDA-Public Use
  Company Number: PHHY2014SI019505

PATIENT
  Sex: Female

DRUGS (3)
  1. GILENYA [Suspect]
     Indication: MULTIPLE SCLEROSIS
     Dosage: 1 DF, QD
     Dates: start: 20131220
  2. ASENTRA [Concomitant]
     Indication: DEPRESSION
     Dosage: 1 DF, QD
     Route: 048
  3. MIRAPEXIN [Concomitant]
     Indication: RESTLESS LEGS SYNDROME
     Dosage: 1 DF, QD
     Route: 048

REACTIONS (2)
  - Abdominal pain [Recovered/Resolved]
  - Paraesthesia [Recovered/Resolved]
